FAERS Safety Report 5406773-3 (Version None)
Quarter: 2007Q3

REPORT INFORMATION
  Report Type: 
  Country: None (occurrence: None)
  Receive Date: 20070807
  Receipt Date: 20070803
  Transmission Date: 20080115
  Serious: Yes (Death)
  Sender: FDA-Public Use
  Company Number: PHNR2007AU01429

PATIENT
  Age: 76 Year
  Sex: Female

DRUGS (6)
  1. SLOW-K [Suspect]
     Route: 048
  2. AURANOFIN [Suspect]
     Indication: ARTHRITIS
     Route: 048
     Dates: start: 19930624, end: 19930629
  3. NAPROSYN [Suspect]
     Indication: ARTHRITIS
     Route: 054
     Dates: start: 19930624
  4. LASIX [Suspect]
     Route: 048
  5. PEPCIDINE [Suspect]
     Route: 048
  6. ORUDIS [Suspect]
     Dosage: 200 MG DAILY
     Route: 048
     Dates: start: 19930505

REACTIONS (6)
  - APLASTIC ANAEMIA [None]
  - HAEMOGLOBIN DECREASED [None]
  - LYMPHOCYTE COUNT INCREASED [None]
  - LYMPHOCYTE MORPHOLOGY ABNORMAL [None]
  - PLATELET COUNT DECREASED [None]
  - WHITE BLOOD CELL COUNT DECREASED [None]
